FAERS Safety Report 7003382-X (Version None)
Quarter: 2010Q3

REPORT INFORMATION
  Report Type: 
  Country: None (occurrence: None)
  Receive Date: 20100920
  Receipt Date: 20100908
  Transmission Date: 20110219
  Serious: No
  Sender: FDA-Public Use
  Company Number: US-PFIZER INC-2010117123

PATIENT
  Sex: Female
  Weight: 44.898 kg

DRUGS (5)
  1. ZYVOX [Suspect]
     Indication: URINARY TRACT INFECTION
     Dosage: 600 MG, 2X/DAY
     Route: 048
     Dates: start: 20100101
  2. ZYVOX [Suspect]
     Indication: SEPTIC SHOCK
  3. VANCOMYCIN [Suspect]
     Dosage: UNK
     Dates: start: 20100801, end: 20100101
  4. ZYVOX [Suspect]
     Dosage: 600 MG, 2X/DAY
     Route: 042
     Dates: start: 20100801, end: 20100101
  5. ZYVOX [Suspect]

REACTIONS (3)
  - DIARRHOEA [None]
  - TREMOR [None]
  - URINE OUTPUT DECREASED [None]
